FAERS Safety Report 14155137 (Version 2)
Quarter: 2018Q1

REPORT INFORMATION
  Report Type: Spontaneous
  Country: IT (occurrence: IT)
  Receive Date: 20171103
  Receipt Date: 20180209
  Transmission Date: 20180508
  Serious: Yes (Other)
  Sender: FDA-Public Use
  Company Number: IT-B.I. PHARMACEUTICALS,INC./RIDGEFIELD-2017-BI-058359

PATIENT
  Age: 52 Year
  Sex: Female

DRUGS (1)
  1. MOBIC [Suspect]
     Active Substance: MELOXICAM
     Indication: EPICONDYLITIS
     Dosage: AS REQUIRED
     Route: 048

REACTIONS (4)
  - Face oedema [Recovering/Resolving]
  - Pruritus [Recovering/Resolving]
  - Eyelid oedema [Recovering/Resolving]
  - Flushing [Recovering/Resolving]

NARRATIVE: CASE EVENT DATE: 20170922
